FAERS Safety Report 25268476 (Version 1)
Quarter: 2025Q2

REPORT INFORMATION
  Report Type: Spontaneous
  Country: US (occurrence: US)
  Receive Date: 20250505
  Receipt Date: 20250505
  Transmission Date: 20250717
  Serious: No
  Sender: PFIZER
  Company Number: US-PFIZER INC-202500091486

PATIENT
  Age: 31 Year
  Sex: Female

DRUGS (3)
  1. CIBINQO [Suspect]
     Active Substance: ABROCITINIB
  2. CIBINQO [Suspect]
     Active Substance: ABROCITINIB
  3. CIBINQO [Suspect]
     Active Substance: ABROCITINIB
     Dosage: 150 MG, DAILY

REACTIONS (5)
  - Blood cholesterol increased [Unknown]
  - Drug ineffective [Unknown]
  - Wrong technique in product usage process [Unknown]
  - Off label use [Unknown]
  - Intentional product misuse [Unknown]
